FAERS Safety Report 8131100-0 (Version None)
Quarter: 2012Q1

REPORT INFORMATION
  Report Type: 
  Country: None (occurrence: None)
  Receive Date: 20120213
  Receipt Date: 20120131
  Transmission Date: 20120608
  Serious: Yes (Other)
  Sender: FDA-Public Use
  Company Number: BE-JNJFOC-20111202143

PATIENT
  Age: 50 Year
  Sex: Female

DRUGS (8)
  1. FOLIC ACID [Concomitant]
  2. STEOVIT D3 [Concomitant]
  3. OMEPRAZOLE [Concomitant]
  4. METHOTREXATE [Concomitant]
  5. PREDNISOLONE [Concomitant]
  6. VOLTAREN [Concomitant]
  7. SIMPONI [Suspect]
     Indication: RHEUMATOID ARTHRITIS
     Route: 058
     Dates: start: 20101101
  8. FOSAVANCE [Concomitant]

REACTIONS (2)
  - RHEUMATOID ARTHRITIS [None]
  - ULCERATIVE KERATITIS [None]
